FAERS Safety Report 5247534-8 (Version None)
Quarter: 2007Q1

REPORT INFORMATION
  Report Type: 
  Country: None (occurrence: None)
  Receive Date: 20070227
  Receipt Date: 20070214
  Transmission Date: 20070707
  Serious: Yes (Other)
  Sender: FDA-Public Use
  Company Number: PHEH2007US01194

PATIENT
  Age: 75 Year
  Sex: Female
  Weight: 93.877 kg

DRUGS (8)
  1. PRAVACHOL [Concomitant]
     Indication: GOUT
     Dosage: 20 MG, QD
     Route: 048
  2. INDOCIN [Concomitant]
     Indication: GOUT
     Dosage: 25 MG, TID
     Route: 048
  3. ACTOS /USA/ [Concomitant]
     Indication: DIABETES MELLITUS NON-INSULIN-DEPENDENT
     Dosage: 30 MG, QD
     Route: 048
  4. METFORMIN HCL [Concomitant]
     Indication: DIABETES MELLITUS NON-INSULIN-DEPENDENT
     Dosage: 500 MG, BID
     Route: 048
  5. LASIX [Concomitant]
     Indication: VENOUS INSUFFICIENCY
     Dosage: 20 MG, QD
     Route: 048
  6. PLAVIX [Concomitant]
     Dosage: 75 MG, QD
     Route: 048
  7. TENORMIN [Concomitant]
     Indication: CORONARY ARTERY DISEASE
     Dosage: 50 MG, QD
     Route: 048
  8. DIOVAN HCT [Suspect]
     Indication: HYPERTENSION
     Dosage: 320MG VAL/12.5MG HCT, QD
     Route: 048
     Dates: start: 20030101, end: 20070101

REACTIONS (1)
  - BREAST CANCER [None]
